FAERS Safety Report 10957536 (Version 1)
Quarter: 2015Q1

REPORT INFORMATION
  Report Type: Spontaneous
  Country: US (occurrence: US)
  Receive Date: 20150326
  Receipt Date: 20150326
  Transmission Date: 20150721
  Serious: No
  Sender: FDA-Public Use
  Company Number: US-ELI_LILLY_AND_COMPANY-US201503007038

PATIENT
  Sex: Male

DRUGS (6)
  1. GLIMEPIRIDE. [Concomitant]
     Active Substance: GLIMEPIRIDE
     Dosage: 4 MG, UNK
  2. HUMALOG [Suspect]
     Active Substance: INSULIN LISPRO
     Dosage: 8 U, TID
     Route: 065
     Dates: start: 2011
  3. HUMALOG [Suspect]
     Active Substance: INSULIN LISPRO
  4. LANTUS [Suspect]
     Active Substance: INSULIN GLARGINE
     Dosage: 75 U, UNK
     Route: 065
  5. LANTUS [Suspect]
     Active Substance: INSULIN GLARGINE
     Indication: TYPE 2 DIABETES MELLITUS
     Dosage: 85 U, UNK
     Route: 065
  6. METFORMIN [Concomitant]
     Active Substance: METFORMIN HYDROCHLORIDE
     Dosage: 1 DF, BID

REACTIONS (5)
  - Underdose [Unknown]
  - Injection site scar [Unknown]
  - Hyperkeratosis [Unknown]
  - Blood glucose decreased [Unknown]
  - Injection site pain [Unknown]

NARRATIVE: CASE EVENT DATE: 20150318
